FAERS Safety Report 5250251-1 (Version None)
Quarter: 2007Q1

REPORT INFORMATION
  Report Type: 
  Country: None (occurrence: None)
  Receive Date: 20070228
  Receipt Date: 20060306
  Transmission Date: 20070707
  Serious: No
  Sender: FDA-Public Use
  Company Number: US-GLAXOSMITHKLINE-A0596607A

PATIENT
  Age: 17 Year
  Sex: Female

DRUGS (4)
  1. LAMICTAL [Suspect]
     Indication: BIPOLAR DISORDER
     Dosage: 225MG PER DAY
     Route: 048
  2. VISTARIL [Concomitant]
  3. KLONOPIN [Concomitant]
  4. PROZAC [Concomitant]

REACTIONS (1)
  - DRUG SCREEN FALSE POSITIVE [None]
